FAERS Safety Report 5105246-5 (Version None)
Quarter: 2006Q3

REPORT INFORMATION
  Report Type: 
  Country: None (occurrence: None)
  Receive Date: 20060911
  Receipt Date: 20060814
  Transmission Date: 20061208
  Serious: Yes (Hospitalization)
  Sender: FDA-Public Use
  Company Number: US200608004975

PATIENT
  Age: 30 Year
  Sex: Female

DRUGS (6)
  1. DULOXETINE HYDROCHLORIDE (DULOXETINE HYDROCHLORIDE) [Suspect]
  2. FLUOXETINE HCL [Suspect]
  3. AZITHROMYCIN [Concomitant]
  4. CYANOCOBALAMIN [Concomitant]
  5. MULTIVITAMINS (ASCORBIC ACID, ERGOCALCIFEROL, FOLIC ACID, NICOTINAMIDE [Concomitant]
  6. GARLIC (GARLIC) [Concomitant]

REACTIONS (5)
  - EOSINOPHILIC PNEUMONIA ACUTE [None]
  - HEART RATE INCREASED [None]
  - LUNG CONSOLIDATION [None]
  - RESPIRATORY FAILURE [None]
  - SHOCK [None]
